FAERS Safety Report 4404311-5 (Version None)
Quarter: 2004Q3

REPORT INFORMATION
  Report Type: 
  Country: None (occurrence: None)
  Receive Date: 20040720
  Receipt Date: 20040707
  Transmission Date: 20050211
  Serious: No
  Sender: FDA-Public Use
  Company Number: 2004UW10204

PATIENT
  Age: 88 Year
  Sex: Female

DRUGS (4)
  1. SEROQUEL [Suspect]
     Indication: AGGRESSION
     Dosage: 2-3 OF 25 MG TABLETS QAM AND 75 MG QHS
     Dates: start: 20040416
  2. SEROQUEL [Suspect]
     Indication: AGGRESSION
     Dosage: 112.5 MG DAILY PO
     Route: 048
  3. RISPERIDONE [Concomitant]
  4. ATIVAN [Concomitant]

REACTIONS (7)
  - AGGRESSION [None]
  - APHASIA [None]
  - DEPRESSED LEVEL OF CONSCIOUSNESS [None]
  - DYSKINESIA [None]
  - DYSPNOEA [None]
  - HYPOTENSION [None]
  - VISUAL DISTURBANCE [None]
